FAERS Safety Report 17150986 (Version 1)
Quarter: 2019Q4

REPORT INFORMATION
  Report Type: Spontaneous
  Country: US (occurrence: US)
  Receive Date: 20191213
  Receipt Date: 20191213
  Transmission Date: 20200122
  Serious: No
  Sender: FDA-Public Use
  Company Number: US-MYLANLABS-2019M1119322

PATIENT
  Age: 60 Year
  Sex: Female
  Weight: 66 kg

DRUGS (1)
  1. ESTRADIOL TRANSDERMAL SYSTEM [Suspect]
     Active Substance: ESTRADIOL
     Indication: HORMONE REPLACEMENT THERAPY
     Dosage: UNK, QW
     Route: 062

REACTIONS (8)
  - Drug ineffective for unapproved indication [Not Recovered/Not Resolved]
  - Wrong technique in product usage process [Not Recovered/Not Resolved]
  - Application site scar [Not Recovered/Not Resolved]
  - Vaginal haemorrhage [Not Recovered/Not Resolved]
  - Rash [Recovered/Resolved]
  - Application site scab [Unknown]
  - Blood urine present [Not Recovered/Not Resolved]
  - Product adhesion issue [Unknown]
